FAERS Safety Report 9592418 (Version 1)
Quarter: 2013Q3

REPORT INFORMATION
  Report Type: Spontaneous
  Country: US (occurrence: None)
  Receive Date: 20130927
  Receipt Date: 20130927
  Transmission Date: 20140515
  Serious: Yes (Life-Threatening)
  Sender: FDA-Public Use
  Company Number: RB-54833-2013

PATIENT
  Age: 34 Year
  Sex: Female

DRUGS (1)
  1. SUBOXONE [Suspect]
     Indication: DRUG DEPENDENCE
     Dates: start: 201212, end: 201212

REACTIONS (4)
  - Throat tightness [None]
  - Dyspnoea [None]
  - Hypersensitivity [None]
  - Rash generalised [None]
